FAERS Safety Report 7557538-8 (Version None)
Quarter: 2011Q2

REPORT INFORMATION
  Report Type: 
  Country: None (occurrence: None)
  Receive Date: 20110620
  Receipt Date: 20110614
  Transmission Date: 20111010
  Serious: No
  Sender: FDA-Public Use
  Company Number: US-PFIZER INC-2011130586

PATIENT
  Sex: Female
  Weight: 46.3 kg

DRUGS (1)
  1. PREMARIN [Suspect]
     Indication: VULVOVAGINAL DRYNESS
     Dosage: 0.5 G, DAILY
     Route: 067
     Dates: start: 20110612

REACTIONS (3)
  - VULVOVAGINAL PRURITUS [None]
  - VULVOVAGINAL PAIN [None]
  - PARAESTHESIA OF GENITAL FEMALE [None]
